FAERS Safety Report 4506054-6 (Version None)
Quarter: 2004Q4

REPORT INFORMATION
  Report Type: 
  Country: None (occurrence: None)
  Receive Date: 20041025
  Receipt Date: 20040719
  Transmission Date: 20050328
  Serious: Yes (Hospitalization, Other)
  Sender: FDA-Public Use
  Company Number: US-JNJFOC-20040503138

PATIENT
  Age: 42 Year
  Sex: Female
  Weight: 59.4212 kg

DRUGS (5)
  1. REMICADE [Suspect]
     Indication: RHEUMATOID ARTHRITIS
     Dosage: 400 MG, INTRAVENOUS; 300 MG, INTRAVENOUS
     Route: 042
     Dates: start: 20030201
  2. REMICADE [Suspect]
     Indication: RHEUMATOID ARTHRITIS
     Dosage: 400 MG, INTRAVENOUS; 300 MG, INTRAVENOUS
     Route: 042
     Dates: start: 20040303
  3. CAPTOPRIL [Concomitant]
  4. ADVAIR (SERETIDE MITE) [Concomitant]
  5. VENTOLIN [Concomitant]

REACTIONS (4)
  - ABSCESS [None]
  - DYSPNOEA [None]
  - EOSINOPHILIA [None]
  - OEDEMA [None]
